FAERS Safety Report 8609396-8 (Version None)
Quarter: 2012Q3

REPORT INFORMATION
  Report Type: 
  Country: None (occurrence: None)
  Receive Date: 20120821
  Receipt Date: 20120808
  Transmission Date: 20120928
  Serious: No
  Sender: FDA-Public Use
  Company Number: US-ASTRAZENECA-2011SE40562

PATIENT
  Sex: Female

DRUGS (4)
  1. SYMBICORT [Suspect]
     Dosage: 160/4.5 MCG, 1 PUFF DAILY
     Route: 055
  2. BLOOD PRESSURE MEDICATION [Concomitant]
     Indication: HYPERTENSION
  3. SYMBICORT [Suspect]
     Indication: ASTHMA
     Dosage: 160/4.5 MCG 2 PUFFS BID
     Route: 055
     Dates: start: 20110301
  4. FLUTICASONE PROPIONATE [Concomitant]

REACTIONS (4)
  - DYSPNOEA [None]
  - MALAISE [None]
  - INSOMNIA [None]
  - OFF LABEL USE [None]
